FAERS Safety Report 7721376-3 (Version None)
Quarter: 2011Q3

REPORT INFORMATION
  Report Type: 
  Country: None (occurrence: None)
  Receive Date: 20110831
  Receipt Date: 20110822
  Transmission Date: 20111222
  Serious: Yes (Death, Disabling, Other)
  Sender: FDA-Public Use
  Company Number: JP-ROCHE-720544

PATIENT
  Age: 72 Year
  Sex: Male
  Weight: 65 kg

DRUGS (8)
  1. BASEN [Concomitant]
     Route: 048
     Dates: start: 20100212
  2. CARBOPLATIN [Suspect]
     Indication: LUNG ADENOCARCINOMA
     Route: 041
     Dates: start: 20100720
  3. PLAVIX [Concomitant]
     Route: 048
     Dates: start: 20071012
  4. GRANISETRON [Concomitant]
     Route: 041
     Dates: start: 20100720
  5. AVASTIN [Suspect]
     Indication: LUNG ADENOCARCINOMA
     Route: 041
     Dates: start: 20100720, end: 20100720
  6. GEMZAR [Suspect]
     Indication: LUNG ADENOCARCINOMA
     Route: 041
     Dates: start: 20100720
  7. ASPIRIN [Concomitant]
     Dosage: DOSAGE FORM: UNCERTAINATY, DOSAGE IS UNCERTAIN.
     Route: 065
  8. CALBLOCK [Concomitant]
     Route: 048

REACTIONS (6)
  - MOUTH HAEMORRHAGE [None]
  - TOXIC SKIN ERUPTION [None]
  - EPISTAXIS [None]
  - CEREBRAL INFARCTION [None]
  - DISEASE PROGRESSION [None]
  - PLATELET COUNT DECREASED [None]
